FAERS Safety Report 7795619-4 (Version None)
Quarter: 2011Q4

REPORT INFORMATION
  Report Type: 
  Country: None (occurrence: None)
  Receive Date: 20111004
  Receipt Date: 20110926
  Transmission Date: 20120403
  Serious: Yes (Hospitalization)
  Sender: FDA-Public Use
  Company Number: US-GLAXOSMITHKLINE-A0946369A

PATIENT
  Sex: Female

DRUGS (4)
  1. VALTREX [Suspect]
     Indication: HERPES ZOSTER
     Dates: start: 20110907
  2. COPEGUS [Suspect]
     Indication: HEPATITIS C
     Dates: start: 20110815
  3. CITALOPRAM HYDROBROMIDE [Suspect]
     Indication: PRODUCT USED FOR UNKNOWN INDICATION
     Route: 065
  4. PEGASYS [Suspect]
     Indication: HEPATITIS C
     Dates: start: 20110815

REACTIONS (4)
  - DEPRESSION [None]
  - CRYING [None]
  - ANXIETY [None]
  - THINKING ABNORMAL [None]
